FAERS Safety Report 6433154-6 (Version None)
Quarter: 2009Q4

REPORT INFORMATION
  Report Type: 
  Country: None (occurrence: None)
  Receive Date: 20091109
  Receipt Date: 20091026
  Transmission Date: 20100525
  Serious: Yes (Hospitalization)
  Sender: FDA-Public Use
  Company Number: PHEH2009US14456

PATIENT
  Sex: Male

DRUGS (11)
  1. EXFORGE [Suspect]
     Dosage: 320/10 MG
     Route: 048
     Dates: start: 20090501
  2. EXFORGE [Suspect]
     Dosage: 320/5 MG
     Route: 048
     Dates: start: 20091001
  3. ATENOLOL [Concomitant]
     Dosage: 50 MG
  4. POTASSIUM CHLORIDE [Concomitant]
     Dosage: 10MEQ
  5. CYMBALTA [Concomitant]
     Dosage: 60 MG
  6. FENTANYL [Concomitant]
     Dosage: 50 MG
     Route: 062
  7. OXYCODONE [Concomitant]
     Dosage: 10/325 MG
  8. LIPITOR [Concomitant]
     Dosage: 10 MG
  9. CELEBREX [Concomitant]
     Dosage: 20 MG
  10. FERROUS SULFATE TAB [Concomitant]
     Dosage: 325 MG
  11. LOVENOX [Concomitant]

REACTIONS (3)
  - HIP SURGERY [None]
  - OEDEMA PERIPHERAL [None]
  - SWELLING [None]
